FAERS Safety Report 9719023 (Version 1)
Quarter: 2013Q4

REPORT INFORMATION
  Report Type: Spontaneous
  Country: GB (occurrence: None)
  Receive Date: 20131126
  Receipt Date: 20131126
  Transmission Date: 20140711
  Serious: Yes (Hospitalization, Other)
  Sender: FDA-Public Use
  Company Number: DEP_01269_2013

PATIENT
  Age: 55 Year
  Sex: Male

DRUGS (4)
  1. DICLOFENAC (DICLOFENAC) [Suspect]
     Indication: PRODUCT USED FOR UNKNOWN INDICATION
     Dosage: (238-50 MG TABLETS, ONCE, NOT AS PRESCRIBED)?THERAPY DATES UNKNOWN UNTIL NOT CONTINUING
  2. PARACETAMOL (PARACETAMOL) [Suspect]
     Indication: PRODUCT USED FOR UNKNOWN INDICATION
     Dosage: (48-500MG TABLETS, ONCE , NOT AS PRESCRIBED) UNTIL NOT CONTINING)
  3. DIHYDROCODEINE BITARTRATE [Suspect]
     Indication: PRODUCT USED FOR UNKNOWN INDICATION
     Dosage: (80-60 MG TABLETS , ONCE , NOT AS PRESCRIBED ) THERAPY UNKNOWN UNTIL NOT CONTINUING)
  4. ALCOHOL [Suspect]
     Indication: PRODUCT USED FOR UNKNOWN INDICATION
     Dosage: (12 SHOTS WITHIN 30 MINUTES, ONCE)

REACTIONS (8)
  - Intentional overdose [None]
  - Respiratory depression [None]
  - Haemoglobin decreased [None]
  - Erosive duodenitis [None]
  - Oesophagitis [None]
  - Platelet dysfunction [None]
  - Gastrointestinal erosion [None]
  - Large intestine perforation [None]
